FAERS Safety Report 7369282-0 (Version None)
Quarter: 2011Q1

REPORT INFORMATION
  Report Type: 
  Country: None (occurrence: None)
  Receive Date: 20110323
  Receipt Date: 20110317
  Transmission Date: 20110831
  Serious: Yes (Hospitalization)
  Sender: FDA-Public Use
  Company Number: A0918678A

PATIENT
  Age: 51 Year
  Sex: Male

DRUGS (2)
  1. AVANDIA [Suspect]
     Indication: TYPE 2 DIABETES MELLITUS
     Route: 048
     Dates: start: 20000101
  2. GLUCOPHAGE [Concomitant]

REACTIONS (3)
  - MYOCARDIAL INFARCTION [None]
  - ANGIOPLASTY [None]
  - CORONARY ARTERIAL STENT INSERTION [None]
